FAERS Safety Report 25897416 (Version 4)
Quarter: 2025Q4

REPORT INFORMATION
  Report Type: Spontaneous
  Country: CO (occurrence: CO)
  Receive Date: 20251008
  Receipt Date: 20251028
  Transmission Date: 20260117
  Serious: No
  Sender: PFIZER
  Company Number: CO-PFIZER INC-PV202500118565

PATIENT
  Sex: Male

DRUGS (1)
  1. GENOTROPIN [Suspect]
     Active Substance: SOMATROPIN
     Indication: Type 1 diabetes mellitus
     Dosage: UNK

REACTIONS (3)
  - Off label use [Unknown]
  - Drug administered in wrong device [Unknown]
  - Product preparation issue [Unknown]
